FAERS Safety Report 8882189 (Version 2)
Quarter: 2013Q1

REPORT INFORMATION
  Report Type: Spontaneous
  Country: HR (occurrence: HR)
  Receive Date: 20121105
  Receipt Date: 20130206
  Transmission Date: 20140127
  Serious: Yes (Other)
  Sender: FDA-Public Use
  Company Number: HR-JNJFOC-20121016476

PATIENT
  Age: 23 Year
  Sex: Female

DRUGS (8)
  1. RISPOLEPT [Suspect]
     Indication: ACUTE PSYCHOSIS
     Route: 048
     Dates: start: 2008, end: 2008
  2. RISPOLEPT [Suspect]
     Indication: ACUTE PSYCHOSIS
     Route: 048
     Dates: start: 2008, end: 200812
  3. BIPERIDEN [Suspect]
     Indication: ACUTE PSYCHOSIS
     Route: 065
  4. DIAZEPAM [Suspect]
     Indication: ACUTE PSYCHOSIS
     Route: 065
  5. ZIPRASIDONE [Suspect]
     Indication: ACUTE PSYCHOSIS
     Route: 065
  6. SERTRALINE [Suspect]
     Indication: ACUTE PSYCHOSIS
     Route: 065
  7. SERTRALINE [Suspect]
     Indication: ACUTE PSYCHOSIS
     Route: 065
  8. VALPROATE SODIUM [Suspect]
     Indication: PRODUCT USED FOR UNKNOWN INDICATION
     Route: 065

REACTIONS (3)
  - Psychotic disorder [Recovered/Resolved]
  - Akathisia [Recovered/Resolved]
  - Mood swings [Recovered/Resolved]
